FAERS Safety Report 10678311 (Version 2)
Quarter: 2014Q4

REPORT INFORMATION
  Report Type: Report from Study
  Country: US (occurrence: US)
  Receive Date: 20141229
  Receipt Date: 20141231
  Transmission Date: 20150529
  Serious: Yes (Death, Life-Threatening)
  Sender: FDA-Public Use
  Company Number: US-ROCHE-1512859

PATIENT

DRUGS (15)
  1. ZIDOVUDINE. [Suspect]
     Active Substance: ZIDOVUDINE
     Indication: HERPES VIRUS INFECTION
  2. RITUXIMAB [Suspect]
     Active Substance: RITUXIMAB
     Indication: KAPOSI^S SARCOMA
  3. INTERFERON ALFA-2A [Suspect]
     Active Substance: INTERFERON ALFA-2A
     Indication: KAPOSI^S SARCOMA
  4. LIPOSOMAL DOXORUBICIN [Suspect]
     Active Substance: DOXORUBICIN HYDROCHLORIDE
     Indication: KAPOSI^S SARCOMA
  5. ZIDOVUDINE. [Suspect]
     Active Substance: ZIDOVUDINE
     Indication: CASTLEMAN^S DISEASE
     Dosage: FOR 7 DAYS OF A 21-DAY CYCLE 2
     Route: 048
  6. RITUXIMAB [Suspect]
     Active Substance: RITUXIMAB
     Indication: CASTLEMAN^S DISEASE
     Route: 042
  7. RITUXIMAB [Suspect]
     Active Substance: RITUXIMAB
     Indication: HERPES VIRUS INFECTION
  8. VALGANCICLOVIR [Suspect]
     Active Substance: VALGANCICLOVIR
     Indication: CASTLEMAN^S DISEASE
     Dosage: FOR 7 DAYS OF A 21-DAY CYCLE2
     Route: 048
  9. VALGANCICLOVIR [Suspect]
     Active Substance: VALGANCICLOVIR
     Indication: KAPOSI^S SARCOMA
  10. LIPOSOMAL DOXORUBICIN [Suspect]
     Active Substance: DOXORUBICIN HYDROCHLORIDE
     Indication: HERPES VIRUS INFECTION
  11. VALGANCICLOVIR [Suspect]
     Active Substance: VALGANCICLOVIR
     Indication: HERPES VIRUS INFECTION
  12. ZIDOVUDINE. [Suspect]
     Active Substance: ZIDOVUDINE
     Indication: KAPOSI^S SARCOMA
  13. INTERFERON ALFA-2A [Suspect]
     Active Substance: INTERFERON ALFA-2A
     Indication: HERPES VIRUS INFECTION
  14. LIPOSOMAL DOXORUBICIN [Suspect]
     Active Substance: DOXORUBICIN HYDROCHLORIDE
     Indication: CASTLEMAN^S DISEASE
     Route: 042
  15. INTERFERON ALFA-2A [Suspect]
     Active Substance: INTERFERON ALFA-2A
     Indication: CASTLEMAN^S DISEASE
     Dosage: 7.5 MILLION UNITS AND ESCALATING TO UP TO 45 MILLION UNITS 3 TIMES WEEKLY AS TOLERATED.
     Route: 058

REACTIONS (29)
  - Neutropenia [Unknown]
  - Lymphopenia [Unknown]
  - Stomatitis [Unknown]
  - Insomnia [Unknown]
  - Pneumonia streptococcal [Fatal]
  - Gastrooesophageal reflux disease [Unknown]
  - Decreased appetite [Unknown]
  - Depression [Unknown]
  - Pyrexia [Unknown]
  - Blood albumin decreased [Unknown]
  - Bone pain [Unknown]
  - Proteinuria [Unknown]
  - Fatigue [Unknown]
  - Abdominal pain [Unknown]
  - Dysgeusia [Unknown]
  - Pancreatic carcinoma [Fatal]
  - Headache [Unknown]
  - Myalgia [Unknown]
  - Dyspepsia [Unknown]
  - Product used for unknown indication [Unknown]
  - Anaemia [Unknown]
  - Thrombocytopenia [Unknown]
  - Rash [Unknown]
  - Nausea [Unknown]
  - Infection [Unknown]
  - Infusion related reaction [Unknown]
  - Transaminases increased [Unknown]
  - Weight decreased [Unknown]
  - Vomiting [Unknown]
